FAERS Safety Report 6039127-X (Version None)
Quarter: 2009Q1

REPORT INFORMATION
  Report Type: 
  Country: None (occurrence: None)
  Receive Date: 20090115
  Receipt Date: 20090105
  Transmission Date: 20090719
  Serious: Yes (Other)
  Sender: FDA-Public Use
  Company Number: US-WYE-H07532009

PATIENT
  Sex: Female

DRUGS (15)
  1. EFFEXOR [Suspect]
     Indication: DEPRESSION
     Dosage: UNKNOWN
  2. ASPIRIN [Concomitant]
     Dosage: 325 MG, FREQUENCY UNKNOWN
  3. COZAAR [Concomitant]
     Indication: HYPERTENSION
     Dosage: UNKNOWN
  4. LEXAPRO [Concomitant]
     Indication: DEPRESSION
     Dosage: UNKNOWN
  5. ZOCOR [Concomitant]
     Indication: HYPERCHOLESTEROLAEMIA
     Dosage: UNKNOWN
  6. PREVACID [Concomitant]
     Indication: GASTROOESOPHAGEAL REFLUX DISEASE
     Dosage: UNKNOWN
  7. SYNTHROID [Concomitant]
     Indication: HYPOTHYROIDISM
     Dosage: UNKNOWN
  8. BACLOFEN [Concomitant]
     Dosage: UNKNOWN
  9. TRIAMTERENE [Concomitant]
     Dosage: UNKNOWN
  10. FLAXSEED [Concomitant]
     Dosage: UNKNOWN
  11. GARLIC [Concomitant]
     Dosage: UNKNOWN
  12. CALCIUM WITH VITAMIN D [Concomitant]
     Dosage: UNKNOWN
  13. MULTI-VITAMINS [Concomitant]
     Dosage: UNKNOWN
  14. XANAX [Concomitant]
     Indication: ANXIETY
     Dosage: UNKNOWN
  15. REBIF [Suspect]
     Indication: MULTIPLE SCLEROSIS
     Route: 058
     Dates: start: 20050418

REACTIONS (11)
  - AMNESIA [None]
  - ANXIETY [None]
  - CEREBROVASCULAR ACCIDENT [None]
  - CHOKING [None]
  - CONDITION AGGRAVATED [None]
  - DIZZINESS [None]
  - EYE DISORDER [None]
  - GAIT DISTURBANCE [None]
  - HEART RATE IRREGULAR [None]
  - INCREASED UPPER AIRWAY SECRETION [None]
  - VISUAL IMPAIRMENT [None]
